FAERS Safety Report 7487908-8 (Version None)
Quarter: 2011Q2

REPORT INFORMATION
  Report Type: 
  Country: None (occurrence: None)
  Receive Date: 20110518
  Receipt Date: 20110510
  Transmission Date: 20111010
  Serious: Yes (Other)
  Sender: FDA-Public Use
  Company Number: US-JNJFOC-20110504999

PATIENT
  Sex: Female
  Weight: 50.8 kg

DRUGS (1)
  1. ORTHO TRI-CYCLEN LO [Suspect]
     Indication: CONTRACEPTION
     Route: 048
     Dates: start: 20020101, end: 20100901

REACTIONS (4)
  - DRUG DOSE OMISSION [None]
  - BLOOD PROLACTIN INCREASED [None]
  - SKIN ATROPHY [None]
  - AMENORRHOEA [None]
